FAERS Safety Report 7305655-X (Version None)
Quarter: 2011Q1

REPORT INFORMATION
  Report Type: 
  Country: None (occurrence: None)
  Receive Date: 20110222
  Receipt Date: 20110214
  Transmission Date: 20110831
  Serious: Yes (Hospitalization)
  Sender: FDA-Public Use
  Company Number: A0846667A

PATIENT
  Age: 44 Year
  Sex: Male

DRUGS (2)
  1. GLYBURIDE [Concomitant]
  2. AVANDIA [Suspect]
     Dosage: 4MG TWICE PER DAY
     Route: 048
     Dates: start: 20030101, end: 20070501

REACTIONS (3)
  - LIBIDO DECREASED [None]
  - MYOCARDIAL INFARCTION [None]
  - INTRACARDIAC THROMBUS [None]
